FAERS Safety Report 15490194 (Version 2)
Quarter: 2018Q4

REPORT INFORMATION
  Report Type: Report from Study
  Country: ZA (occurrence: ZA)
  Receive Date: 20181011
  Receipt Date: 20181030
  Transmission Date: 20190205
  Serious: Yes (Hospitalization)
  Sender: FDA-Public Use
  Company Number: ZA-SA-2018SA275723

PATIENT
  Age: 72 Year
  Sex: Female

DRUGS (7)
  1. VERAHEXAL [Concomitant]
     Active Substance: VERAPAMIL HYDROCHLORIDE
     Dosage: UNK
  2. OPTISULIN (INSULIN GLARGINE) [Suspect]
     Active Substance: INSULIN GLARGINE
     Indication: TYPE 2 DIABETES MELLITUS
     Dosage: 10 (UNIT UNKNOWN), QD (AT NIGHT)
     Dates: start: 20180930
  3. MYOPRIN [Concomitant]
     Active Substance: ASPIRIN
     Dosage: UNK
  4. ENALAPRIL UNICORN [Concomitant]
     Dosage: UNK
  5. NO STUDY DRUG GIVEN [Suspect]
     Active Substance: UNSPECIFIED INGREDIENT
     Dosage: UNK
  6. MYLAN FUROSEMIDE [Concomitant]
     Active Substance: FUROSEMIDE
     Dosage: UNK UNK, UNK
  7. ASPAVOR [Concomitant]
     Active Substance: ATORVASTATIN
     Dosage: UNK

REACTIONS (4)
  - Hypoglycaemia [Unknown]
  - Drug ineffective [Unknown]
  - Device issue [Unknown]
  - Chest pain [Unknown]
